FAERS Safety Report 6633943-9 (Version None)
Quarter: 2010Q1

REPORT INFORMATION
  Report Type: 
  Country: None (occurrence: None)
  Receive Date: 20100315
  Receipt Date: 20100305
  Transmission Date: 20100710
  Serious: Yes (Hospitalization)
  Sender: FDA-Public Use
  Company Number: FR-JNJFOC-20100302604

PATIENT
  Age: 55 Year
  Sex: Female

DRUGS (2)
  1. RISPERDAL [Suspect]
     Indication: DELIRIUM
     Route: 065
  2. RISPERDAL [Suspect]
     Route: 065

REACTIONS (2)
  - BRADYCARDIA [None]
  - HOSPITALISATION [None]
